FAERS Safety Report 10250441 (Version 1)
Quarter: 2014Q2

REPORT INFORMATION
  Report Type: Spontaneous
  Country: US (occurrence: US)
  Receive Date: 20140620
  Receipt Date: 20140620
  Transmission Date: 20141212
  Serious: No
  Sender: FDA-Public Use
  Company Number: US-TEVA-488482USA

PATIENT
  Sex: Male

DRUGS (1)
  1. QNASL [Suspect]
     Route: 045

REACTIONS (3)
  - Cough [Recovered/Resolved]
  - Sputum increased [Recovered/Resolved]
  - Incorrect route of drug administration [Recovered/Resolved]
